FAERS Safety Report 13997490 (Version 1)
Quarter: 2017Q3

REPORT INFORMATION
  Report Type: Spontaneous
  Country: AT (occurrence: AT)
  Receive Date: 20170921
  Receipt Date: 20170921
  Transmission Date: 20171128
  Serious: Yes (Death, Other)
  Sender: FDA-Public Use
  Company Number: AT-AMGEN GMBH-AUTSP2017078087

PATIENT
  Age: 56 Year
  Sex: Male

DRUGS (5)
  1. PARSABIV [Suspect]
     Active Substance: ETELCALCETIDE HYDROCHLORIDE
     Dosage: 30 MG, QWK
     Route: 065
     Dates: start: 20170403, end: 20170421
  2. PARSABIV [Suspect]
     Active Substance: ETELCALCETIDE HYDROCHLORIDE
     Indication: PRODUCT USED FOR UNKNOWN INDICATION
     Dosage: 15 MG, QWK
     Route: 065
     Dates: start: 20170202, end: 20170308
  3. PARSABIV [Suspect]
     Active Substance: ETELCALCETIDE HYDROCHLORIDE
     Dosage: 15 MG, QWK
     Route: 065
     Dates: start: 20170510, end: 20170517
  4. ZEMPLAR [Concomitant]
     Active Substance: PARICALCITOL
     Dosage: 5 TO 15 MUG/ML, QWK
     Route: 042
     Dates: start: 20151028, end: 20170510
  5. MIMPARA [Suspect]
     Active Substance: CINACALCET HYDROCHLORIDE
     Indication: PRODUCT USED FOR UNKNOWN INDICATION
     Route: 065

REACTIONS (3)
  - Hypocalcaemia [Unknown]
  - Drug intolerance [Unknown]
  - Sepsis [Fatal]

NARRATIVE: CASE EVENT DATE: 2017
